FAERS Safety Report 8077687-8 (Version None)
Quarter: 2012Q1

REPORT INFORMATION
  Report Type: 
  Country: None (occurrence: None)
  Receive Date: 20120127
  Receipt Date: 20120124
  Transmission Date: 20120608
  Serious: Yes (Hospitalization)
  Sender: FDA-Public Use
  Company Number: JP-EISAI INC-E2090-01918-SPO-JP

PATIENT
  Sex: Female

DRUGS (12)
  1. CARBIDOPA AND LEVODOPA [Suspect]
     Route: 048
     Dates: start: 20110901
  2. REQUIP [Suspect]
     Dosage: 1.5 MG
     Route: 048
     Dates: start: 20110512, end: 20110608
  3. CARBIDOPA AND LEVODOPA [Suspect]
     Indication: PARKINSON'S DISEASE
     Route: 048
     Dates: start: 20110831
  4. REQUIP [Suspect]
     Dosage: 0.75 MG
     Route: 048
     Dates: start: 20110414, end: 20110511
  5. REQUIP [Suspect]
     Dosage: 2.25. MG
     Route: 048
     Dates: start: 20110609, end: 20110706
  6. ARICEPT [Concomitant]
     Route: 048
  7. MAGMITT [Concomitant]
     Route: 048
  8. ZONISAMIDE [Suspect]
     Indication: PARKINSON'S DISEASE
     Route: 048
     Dates: start: 20101125, end: 20110928
  9. REQUIP [Suspect]
     Dosage: 3 MG
     Route: 048
     Dates: start: 20110707, end: 20110907
  10. PERMAX [Concomitant]
     Route: 048
     Dates: start: 20110413
  11. ACTONEL [Concomitant]
     Route: 048
     Dates: start: 20110319
  12. YOKU-KAN-SAN [Concomitant]
     Route: 048

REACTIONS (3)
  - HALLUCINATION, AUDITORY [None]
  - HALLUCINATION, VISUAL [None]
  - DELUSION [None]
